FAERS Safety Report 4492752-X (Version None)
Quarter: 2004Q4

REPORT INFORMATION
  Report Type: 
  Country: None (occurrence: None)
  Receive Date: 20041102
  Receipt Date: 20041102
  Transmission Date: 20050328
  Serious: Yes (Hospitalization)
  Sender: FDA-Public Use
  Company Number: None

PATIENT
  Age: 37 Year
  Sex: Male

DRUGS (3)
  1. ASPIRIN [Suspect]
  2. HYDROCHLOROTHIAZIDE [Concomitant]
  3. BENAZEPRIL HCL [Concomitant]

REACTIONS (3)
  - DYSPNOEA [None]
  - TREATMENT NONCOMPLIANCE [None]
  - VOMITING [None]
